FAERS Safety Report 23242618 (Version 1)
Quarter: 2023Q4

REPORT INFORMATION
  Report Type: Spontaneous
  Country: US (occurrence: US)
  Receive Date: 20231129
  Receipt Date: 20231129
  Transmission Date: 20240110
  Serious: No
  Sender: FDA-Public Use
  Company Number: US-AMGEN-USASP2023210443

PATIENT
  Age: 89 Year
  Sex: Male

DRUGS (6)
  1. BEVACIZUMAB [Suspect]
     Active Substance: BEVACIZUMAB
     Indication: Retinal vein occlusion
     Dosage: 1.25 MILLIGRAM/0.05 ML
  2. AFLIBERCEPT [Concomitant]
     Active Substance: AFLIBERCEPT
     Indication: Retinal vein occlusion
     Dosage: 2 MILLIGRAM/0.05 ML
  3. BRIMONIDINE TARTRATE\TIMOLOL MALEATE [Concomitant]
     Active Substance: BRIMONIDINE TARTRATE\TIMOLOL MALEATE
     Indication: Retinal vein occlusion
     Dosage: BRIMONIDINE 0.2%/TIMOLOL 0.5%, BID
     Route: 061
  4. LATANOPROST;NETARSUDIL [Concomitant]
     Indication: Retinal vein occlusion
     Dosage: NETARSUDIL 0.02%/LATANAPROST 0.005 %, QD
     Route: 061
  5. PREDNISOLONE [Concomitant]
     Active Substance: PREDNISOLONE
     Indication: Retinal vein occlusion
     Dosage: 1% OS, QID
  6. DORZOLAMIDE\TIMOLOL [Concomitant]
     Active Substance: DORZOLAMIDE\TIMOLOL
     Indication: Retinal vein occlusion
     Dosage: DORZOLAMIDE 2%/TIMOLOL 0.5%, TID

REACTIONS (1)
  - Off label use [Unknown]
